FAERS Safety Report 10574035 (Version 2)
Quarter: 2015Q1

REPORT INFORMATION
  Report Type: Spontaneous
  Country: FR (occurrence: FR)
  Receive Date: 20141110
  Receipt Date: 20150213
  Transmission Date: 20150720
  Serious: Yes (Hospitalization, Other)
  Sender: FDA-Public Use
  Company Number: FR-GLAXOSMITHKLINE-FR2014GSK015311

PATIENT
  Age: 65 Year
  Sex: Female

DRUGS (5)
  1. PRIVIGEN [Suspect]
     Active Substance: HUMAN IMMUNOGLOBULIN G
     Indication: IMMUNE THROMBOCYTOPENIC PURPURA
     Dosage: 65 G, CYC
     Dates: start: 201405, end: 20141018
  2. CORTANCYL [Concomitant]
     Active Substance: PREDNISONE
     Dosage: 5 MG, UNK
  3. REVOLADE [Suspect]
     Active Substance: ELTROMBOPAG
     Indication: IMMUNE THROMBOCYTOPENIC PURPURA
     Dosage: 75 MG, QD
     Route: 048
     Dates: start: 20140718, end: 20140930
  4. IMUREL [Suspect]
     Active Substance: AZATHIOPRINE SODIUM
     Indication: PRODUCT USED FOR UNKNOWN INDICATION
  5. PLAQUENIL [Concomitant]
     Active Substance: HYDROXYCHLOROQUINE SULFATE
     Indication: RHEUMATOID ARTHRITIS
     Dosage: 200 MG, UNK

REACTIONS (1)
  - Venoocclusive liver disease [Not Recovered/Not Resolved]

NARRATIVE: CASE EVENT DATE: 20140926
